FAERS Safety Report 19227149 (Version 16)
Quarter: 2023Q4

REPORT INFORMATION
  Report Type: Report from Study
  Country: ZA (occurrence: ZA)
  Receive Date: 20210507
  Receipt Date: 20231115
  Transmission Date: 20240110
  Serious: Yes (Hospitalization, Other)
  Sender: FDA-Public Use
  Company Number: ZA-CELLTRION INC.-2021ZA006016

PATIENT

DRUGS (6)
  1. INFLIXIMAB [Suspect]
     Active Substance: INFLIXIMAB
     Indication: Crohn^s disease
     Dosage: 800MG/PER INFUSION, 0 WEEKS
     Route: 042
     Dates: start: 20210209
  2. INFLIXIMAB [Suspect]
     Active Substance: INFLIXIMAB
     Dosage: 800 MG, IV,  0 WEEKS, THEN 2 WEEKS, THEN 6 WEEKS
     Route: 042
     Dates: start: 20210507
  3. INFLIXIMAB [Suspect]
     Active Substance: INFLIXIMAB
     Dosage: 800 MG EVERY 8 WEEKS
     Route: 042
     Dates: start: 20211020
  4. INFLIXIMAB [Suspect]
     Active Substance: INFLIXIMAB
     Dosage: 800 MG, AT 8 WEEKLY INTERVALS
     Route: 042
     Dates: start: 20230627
  5. INFLIXIMAB [Concomitant]
     Active Substance: INFLIXIMAB
     Indication: Crohn^s disease
     Dosage: 5 MG/KG
     Route: 042
     Dates: start: 201811, end: 202012
  6. AZATHIOPRINE [Concomitant]
     Active Substance: AZATHIOPRINE
     Indication: Crohn^s disease
     Dosage: 150 MG, PER OS DAILY
     Route: 048

REACTIONS (10)
  - Crohn^s disease [Unknown]
  - Abscess drainage [Unknown]
  - Rectal abscess [Unknown]
  - Diarrhoea [Recovering/Resolving]
  - Fatigue [Recovered/Resolved]
  - Headache [Recovered/Resolved]
  - Drug level below therapeutic [Unknown]
  - Drug level below therapeutic [Unknown]
  - Overdose [Unknown]
  - Drug ineffective [Unknown]

NARRATIVE: CASE EVENT DATE: 20210421
